FAERS Safety Report 20073762 (Version 3)
Quarter: 2021Q4

REPORT INFORMATION
  Report Type: Report from Study
  Country: JP (occurrence: JP)
  Receive Date: 20211116
  Receipt Date: 20211216
  Transmission Date: 20220303
  Serious: Yes (Hospitalization)
  Sender: FDA-Public Use
  Company Number: JP-ASTELLAS-2021JP021921

PATIENT
  Age: 68 Year
  Sex: Female

DRUGS (23)
  1. GILTERITINIB [Suspect]
     Active Substance: GILTERITINIB
     Indication: Acute myeloid leukaemia
     Route: 048
     Dates: start: 20200310
  2. GILTERITINIB [Suspect]
     Active Substance: GILTERITINIB
     Route: 048
     Dates: start: 20200710, end: 20200723
  3. GILTERITINIB [Suspect]
     Active Substance: GILTERITINIB
     Dosage: 80 MG/DAY, UNKNOWN FREQ.
     Route: 048
     Dates: start: 20201102, end: 20211108
  4. CYTARABINE [Suspect]
     Active Substance: CYTARABINE
     Indication: Acute myeloid leukaemia
     Dosage: REMISSION INDUCTION THERAPY: 100 MG/M2/DAY, FROM DAY 1 TO DAY 7
     Route: 065
     Dates: start: 20200303
  5. CYTARABINE [Suspect]
     Active Substance: CYTARABINE
     Dosage: CONSOLIDATION THERAPY: 1.5 G/M2, TWICE DAILY, DAY 1, 3, 5
     Route: 042
     Dates: start: 20200410
  6. IDARUBICIN [Suspect]
     Active Substance: IDARUBICIN
     Indication: Acute myeloid leukaemia
     Dosage: UNK UNK, UNKNOWN FREQ.
     Route: 065
     Dates: start: 20200303
  7. ROSUVASTATIN [Concomitant]
     Active Substance: ROSUVASTATIN
     Indication: Hyperlipidaemia
     Route: 048
  8. ZETIA [Concomitant]
     Active Substance: EZETIMIBE
     Indication: Hyperlipidaemia
     Route: 048
  9. ACTOS [Concomitant]
     Active Substance: PIOGLITAZONE HYDROCHLORIDE
     Indication: Diabetes mellitus
     Route: 048
     Dates: start: 20160428
  10. TRULICITY [Concomitant]
     Active Substance: DULAGLUTIDE
     Indication: Diabetes mellitus
     Dosage: 0.75 MG, ONCE WEEKLY (THURSDAY)
     Route: 058
     Dates: start: 20171013
  11. URSODIOL [Concomitant]
     Active Substance: URSODIOL
     Indication: Liver disorder
     Route: 048
     Dates: start: 20200315
  12. VONOPRAZAN FUMARATE [Concomitant]
     Active Substance: VONOPRAZAN FUMARATE
     Indication: Gastritis
     Route: 048
     Dates: start: 20210217
  13. PREDONINE [Concomitant]
     Active Substance: PREDNISOLONE
     Indication: Tubulointerstitial nephritis
     Route: 048
     Dates: start: 20210218
  14. MIGLITOL [Concomitant]
     Active Substance: MIGLITOL
     Indication: Diabetes mellitus
     Route: 048
     Dates: start: 20210224
  15. BONALON [Concomitant]
     Active Substance: ALENDRONATE SODIUM
     Indication: Osteoporosis
     Dosage: 35 MG, ONCE WEEKLY (FRIDAY)
     Route: 048
     Dates: start: 20210226
  16. GLUFAST OD [Concomitant]
     Indication: Diabetes mellitus
     Route: 048
     Dates: start: 20210302
  17. MAGNESIUM OXIDE [Concomitant]
     Active Substance: MAGNESIUM OXIDE
     Indication: Constipation
     Dosage: 250 MG, THRICE DAILY (SELF-ADJUSTABLE)
     Route: 048
     Dates: start: 20210309
  18. ELOBIXIBAT [Concomitant]
     Active Substance: ELOBIXIBAT
     Indication: Constipation
     Dosage: 10 MG, ONCE DAILY (SELF-ADJUSTABLE)
     Route: 048
     Dates: start: 20210316
  19. LOXOPROFEN SODIUM [Concomitant]
     Active Substance: LOXOPROFEN SODIUM
     Indication: Back pain
     Route: 050
     Dates: start: 20210329
  20. DAPAGLIFLOZIN [Concomitant]
     Active Substance: DAPAGLIFLOZIN
     Indication: Diabetes mellitus
     Route: 048
     Dates: start: 20210803
  21. PREDNISOLONE [Concomitant]
     Active Substance: PREDNISOLONE
     Indication: Tubulointerstitial nephritis
     Route: 048
     Dates: start: 20210830
  22. LEVOFLOXACIN HEMIHYDRATE [Concomitant]
     Active Substance: LEVOFLOXACIN
     Indication: Pneumonia
     Route: 048
     Dates: start: 20211108, end: 20211108
  23. LEVOFLOXACIN HEMIHYDRATE [Concomitant]
     Active Substance: LEVOFLOXACIN
     Route: 048
     Dates: start: 20211109

REACTIONS (1)
  - Pneumonia [Recovering/Resolving]

NARRATIVE: CASE EVENT DATE: 20211109
